FAERS Safety Report 20216174 (Version 3)
Quarter: 2021Q4

REPORT INFORMATION
  Report Type: Spontaneous
  Country: IQ (occurrence: IQ)
  Receive Date: 20211222
  Receipt Date: 20211229
  Transmission Date: 20220303
  Serious: Yes (Death, Other)
  Sender: FDA-Public Use
  Company Number: IQ-009507513-2112IRQ006937

PATIENT
  Age: 75 Year
  Sex: Male

DRUGS (2)
  1. KEYTRUDA [Suspect]
     Active Substance: PEMBROLIZUMAB
     Indication: Non-small cell lung cancer metastatic
     Dosage: 200 MILLIGRAM, Q3W
     Dates: start: 20211108, end: 20211108
  2. KEYTRUDA [Suspect]
     Active Substance: PEMBROLIZUMAB
     Dosage: 200 MILLIGRAM, Q3W; SECOND CYCLE
     Dates: start: 20211129, end: 20211129

REACTIONS (7)
  - Cerebral infarction [Unknown]
  - Malignant neoplasm progression [Fatal]
  - Cognitive disorder [Unknown]
  - Oxygen saturation decreased [Unknown]
  - Amnesia [Unknown]
  - Fatigue [Unknown]
  - Dyspnoea [Unknown]

NARRATIVE: CASE EVENT DATE: 20210101
